FAERS Safety Report 21644451 (Version 1)
Quarter: 2022Q4

REPORT INFORMATION
  Report Type: Report from Study
  Country: US (occurrence: US)
  Receive Date: 20221125
  Receipt Date: 20221125
  Transmission Date: 20230113
  Serious: No
  Sender: FDA-Public Use
  Company Number: US-ABBVIE-4162599

PATIENT
  Sex: Male

DRUGS (2)
  1. HUMIRA [Suspect]
     Active Substance: ADALIMUMAB
     Indication: Crohn^s disease
     Dosage: FORM STRENGTH: 40 MG/CITRATE FREE
     Route: 058
  2. HUMIRA [Suspect]
     Active Substance: ADALIMUMAB
     Dosage: FORM STRENGTH: 40 MG/CITRATE FREE
     Route: 058

REACTIONS (6)
  - Illness [Unknown]
  - Therapeutic product effect incomplete [Unknown]
  - Incorrect dose administered [Unknown]
  - Abdominal pain upper [Unknown]
  - Arthralgia [Unknown]
  - Product use complaint [Unknown]
